FAERS Safety Report 7898278-5 (Version None)
Quarter: 2011Q4

REPORT INFORMATION
  Report Type: 
  Country: None (occurrence: None)
  Receive Date: 20111107
  Receipt Date: 20111026
  Transmission Date: 20120403
  Serious: Yes (Hospitalization)
  Sender: FDA-Public Use
  Company Number: ME-GLAXOSMITHKLINE-B0760238A

PATIENT
  Sex: Female
  Weight: 65 kg

DRUGS (3)
  1. TRAZODONE HYDROCHLORIDE [Concomitant]
  2. ZOLOFT [Suspect]
     Indication: DEPRESSION
     Dosage: 100MG PER DAY
     Route: 048
     Dates: start: 20110922, end: 20110929
  3. PAROXETINE HCL [Suspect]
     Indication: DEPRESSION
     Dosage: 20MG PER DAY
     Route: 048
     Dates: start: 20110930, end: 20111006

REACTIONS (4)
  - SUICIDAL IDEATION [None]
  - ACTIVATION SYNDROME [None]
  - INSOMNIA [None]
  - ANXIETY [None]
